FAERS Safety Report 5707444-6 (Version None)
Quarter: 2008Q2

REPORT INFORMATION
  Report Type: 
  Country: None (occurrence: None)
  Receive Date: 20080416
  Receipt Date: 20080408
  Transmission Date: 20081010
  Serious: Yes (Hospitalization)
  Sender: FDA-Public Use
  Company Number: US-GENENTECH-259035

PATIENT
  Sex: Male

DRUGS (9)
  1. BEVACIZUMAB [Suspect]
     Indication: COLORECTAL CANCER METASTATIC
     Dosage: 560 MG, UNKNOWN
     Route: 042
     Dates: start: 20070108, end: 20070827
  2. CETUXIMAB [Suspect]
     Indication: COLORECTAL CANCER METASTATIC
     Dosage: 944 MG, UNKNOWN
     Route: 042
     Dates: start: 20070108, end: 20070813
  3. FLUOROURACIL [Suspect]
     Indication: COLORECTAL CANCER METASTATIC
     Dosage: 5675 MG, UNKNOWN
     Route: 042
     Dates: start: 20070108, end: 20070827
  4. LEUCOVORIN [Suspect]
     Indication: COLORECTAL CANCER METASTATIC
     Dosage: 945 MG, UNKNOWN
     Route: 042
     Dates: start: 20070108, end: 20070827
  5. DEXAMETHASONE TAB [Concomitant]
     Indication: DRUG USE FOR UNKNOWN INDICATION
     Dates: start: 20070108, end: 20070827
  6. GLUCOVANCE [Concomitant]
     Indication: DRUG USE FOR UNKNOWN INDICATION
     Dates: start: 20070116
  7. DIPHENHYDRAMINE [Concomitant]
     Indication: DRUG USE FOR UNKNOWN INDICATION
     Dates: start: 20070108, end: 20070827
  8. CLEOCIN T GEL [Concomitant]
     Indication: DRUG USE FOR UNKNOWN INDICATION
     Dates: start: 20070604
  9. MAGNESIUM OXIDE [Concomitant]
     Indication: DRUG USE FOR UNKNOWN INDICATION
     Dates: start: 20070402

REACTIONS (13)
  - ATELECTASIS [None]
  - BALANCE DISORDER [None]
  - BLOOD CULTURE POSITIVE [None]
  - CHOLELITHIASIS [None]
  - DECREASED APPETITE [None]
  - GYNAECOMASTIA [None]
  - METASTASES TO LUNG [None]
  - NEUTROPENIA [None]
  - ORAL INTAKE REDUCED [None]
  - PLEURAL FIBROSIS [None]
  - PNEUMONIA [None]
  - RENAL FAILURE [None]
  - STAPHYLOCOCCAL INFECTION [None]
